FAERS Safety Report 4948829-5 (Version None)
Quarter: 2006Q1

REPORT INFORMATION
  Report Type: 
  Country: None (occurrence: None)
  Receive Date: 20060321
  Receipt Date: 20060310
  Transmission Date: 20060701
  Serious: Yes (Hospitalization)
  Sender: FDA-Public Use
  Company Number: JP-JNJFOC-20060303043

PATIENT
  Age: 59 Year
  Sex: Female

DRUGS (1)
  1. MICONAZOLE [Suspect]
     Route: 048
     Dates: start: 20060222, end: 20060308

REACTIONS (2)
  - INTERNATIONAL NORMALISED RATIO INCREASED [None]
  - SMALL INTESTINAL HAEMORRHAGE [None]
